FAERS Safety Report 24372700 (Version 2)
Quarter: 2024Q4

REPORT INFORMATION
  Report Type: Report from Study
  Country: GB (occurrence: GB)
  Receive Date: 20240927
  Receipt Date: 20241213
  Transmission Date: 20250115
  Serious: Yes (Hospitalization, Other)
  Sender: SANDOZ
  Company Number: GB-SANDOZ-SDZ2024GB079637

PATIENT
  Sex: Male

DRUGS (2)
  1. OMNITROPE [Suspect]
     Active Substance: SOMATROPIN
     Indication: Hyperpituitarism
     Dosage: 1.80 MG, QD
     Route: 058
     Dates: start: 20240902
  2. OMNITROPE [Suspect]
     Active Substance: SOMATROPIN
     Dosage: 0.80 MG, QD
     Route: 058
     Dates: start: 20240902

REACTIONS (6)
  - Brain oedema [Not Recovered/Not Resolved]
  - Circumstance or information capable of leading to medication error [Unknown]
  - Anxiety [Unknown]
  - Panic attack [Unknown]
  - Pain [Unknown]
  - Injection site pain [Unknown]
